FAERS Safety Report 17144268 (Version 2)
Quarter: 2021Q1

REPORT INFORMATION
  Report Type: Report from Study
  Country: US (occurrence: US)
  Receive Date: 20191211
  Receipt Date: 20210223
  Transmission Date: 20210419
  Serious: Yes (Hospitalization, Other)
  Sender: FDA-Public Use
  Company Number: US-ALEXION PHARMACEUTICALS INC-A201916514

PATIENT
  Age: 57 Year
  Sex: Male

DRUGS (2)
  1. SOLIRIS [Suspect]
     Active Substance: ECULIZUMAB
     Dosage: UNK
     Route: 065
     Dates: start: 20190106
  2. SOLIRIS [Suspect]
     Active Substance: ECULIZUMAB
     Indication: MYASTHENIA GRAVIS
     Dosage: 1200 MG, Q2W
     Route: 042
     Dates: start: 20181205, end: 20191227

REACTIONS (23)
  - Diarrhoea haemorrhagic [Unknown]
  - Eye haemorrhage [Unknown]
  - Gastrointestinal haemorrhage [Unknown]
  - Urinary incontinence [Recovering/Resolving]
  - Muscular weakness [Recovering/Resolving]
  - Abdominal pain [Unknown]
  - Joint swelling [Recovering/Resolving]
  - Arthralgia [Unknown]
  - Weight decreased [Recovering/Resolving]
  - Infection [Unknown]
  - Gait disturbance [Unknown]
  - Dysarthria [Recovering/Resolving]
  - Anal incontinence [Recovering/Resolving]
  - Gastrointestinal necrosis [Unknown]
  - Musculoskeletal stiffness [Unknown]
  - Rectal haemorrhage [Recovering/Resolving]
  - Gout [Recovering/Resolving]
  - Dysphemia [Recovering/Resolving]
  - Eyelid ptosis [Recovering/Resolving]
  - Visual impairment [Recovering/Resolving]
  - Pustule [Recovering/Resolving]
  - Pain of skin [Unknown]
  - Furuncle [Unknown]

NARRATIVE: CASE EVENT DATE: 201908
